FAERS Safety Report 5716595-1 (Version None)
Quarter: 2008Q2

REPORT INFORMATION
  Report Type: 
  Country: None (occurrence: None)
  Receive Date: 20080424
  Receipt Date: 20080416
  Transmission Date: 20081010
  Serious: Yes (Hospitalization)
  Sender: FDA-Public Use
  Company Number: US-ELI_LILLY_AND_COMPANY-US200804005240

PATIENT
  Age: 66 Year
  Sex: Male

DRUGS (3)
  1. HUMATROPE [Suspect]
     Dosage: UNK, UNKNOWN
  2. TOPROL-XL [Concomitant]
     Dosage: UNK, UNKNOWN
  3. NORVASC [Concomitant]
     Dosage: UNK, UNKNOWN

REACTIONS (1)
  - BLOOD SODIUM DECREASED [None]
